FAERS Safety Report 6436901-2 (Version None)
Quarter: 2009Q4

REPORT INFORMATION
  Report Type: 
  Country: None (occurrence: None)
  Receive Date: 20091109
  Receipt Date: 20091102
  Transmission Date: 20100525
  Serious: Yes (Other)
  Sender: FDA-Public Use
  Company Number: 1000009868

PATIENT
  Age: 28 Year
  Sex: Male

DRUGS (3)
  1. CELEXA [Suspect]
     Indication: INSOMNIA
     Dosage: (20 MG), ORAL
     Route: 048
     Dates: start: 20040717
  2. LEXAPRO [Suspect]
     Indication: INSOMNIA
     Dosage: (10 MG), ORAL
     Route: 048
     Dates: start: 20040709
  3. RESTORIL [Concomitant]

REACTIONS (2)
  - IMPRISONMENT [None]
  - SEXUAL ABUSE [None]
